FAERS Safety Report 9301885 (Version 1)
Quarter: 2013Q2

REPORT INFORMATION
  Report Type: Report from Study
  Country: GB (occurrence: GB)
  Receive Date: 20130521
  Receipt Date: 20130521
  Transmission Date: 20140414
  Serious: Yes (Hospitalization)
  Sender: FDA-Public Use
  Company Number: GB-CELGENEUS-167-20785-13051375

PATIENT
  Age: 56 Year
  Sex: Male

DRUGS (6)
  1. THALIDOMIDE [Suspect]
     Indication: PLASMA CELL MYELOMA
     Dosage: 200 MILLIGRAM
     Route: 048
     Dates: start: 20130202, end: 20130507
  2. CYCLOPHOSPHAMIDE [Suspect]
     Indication: PLASMA CELL MYELOMA
     Route: 048
     Dates: start: 20130202, end: 20130427
  3. DEXAMETHASONE [Suspect]
     Indication: PLASMA CELL MYELOMA
     Dosage: 40 MILLIGRAM
     Route: 048
     Dates: start: 20130202, end: 20130508
  4. ZOMETA [Suspect]
     Indication: PRODUCT USED FOR UNKNOWN INDICATION
     Route: 065
  5. SEPTRIN [Suspect]
     Indication: PRODUCT USED FOR UNKNOWN INDICATION
     Route: 065
  6. LEVOFLOXACIN [Concomitant]
     Indication: RESPIRATORY TRACT INFECTION
     Route: 065

REACTIONS (1)
  - Microangiopathic haemolytic anaemia [Not Recovered/Not Resolved]
